FAERS Safety Report 20726869 (Version 2)
Quarter: 2023Q4

REPORT INFORMATION
  Report Type: Report from Study
  Country: US (occurrence: US)
  Receive Date: 20220419
  Receipt Date: 20231019
  Transmission Date: 20240109
  Serious: Yes (Other)
  Sender: FDA-Public Use
  Company Number: US-JAZZ-2022-US-000103

PATIENT
  Age: 38 Year
  Sex: Male

DRUGS (11)
  1. XYWAV [Suspect]
     Active Substance: CALCIUM OXYBATE\MAGNESIUM OXYBATE\POTASSIUM OXYBATE\SODIUM OXYBATE
     Indication: Narcolepsy
     Dosage: 3.75 GRAM, BID, AT BEDTIME
     Route: 048
     Dates: start: 202107
  2. XYWAV [Suspect]
     Active Substance: CALCIUM OXYBATE\MAGNESIUM OXYBATE\POTASSIUM OXYBATE\SODIUM OXYBATE
     Indication: Somnolence
  3. XYWAV [Suspect]
     Active Substance: CALCIUM OXYBATE\MAGNESIUM OXYBATE\POTASSIUM OXYBATE\SODIUM OXYBATE
     Indication: Cataplexy
  4. NUVIGIL [Concomitant]
     Active Substance: ARMODAFINIL
     Indication: Product used for unknown indication
     Dosage: UNK
     Dates: start: 20090629
  5. ADDERALL [Concomitant]
     Active Substance: AMPHETAMINE ASPARTATE\AMPHETAMINE SULFATE\DEXTROAMPHETAMINE SACCHARATE\DEXTROAMPHETAMINE SULFATE
     Indication: Product used for unknown indication
     Dosage: UNK
     Dates: start: 20160401
  6. LASIX [Concomitant]
     Active Substance: FUROSEMIDE
     Indication: Product used for unknown indication
     Dosage: UNK
     Dates: start: 20170718
  7. ANAPROX DS [Concomitant]
     Active Substance: NAPROXEN SODIUM
     Indication: Product used for unknown indication
     Dosage: UNK
     Dates: start: 20211218
  8. LEVOTHYROXINE [Concomitant]
     Active Substance: LEVOTHYROXINE
     Indication: Product used for unknown indication
     Dosage: UNK
     Dates: start: 20220206
  9. LEVOTHYROXINE [Concomitant]
     Active Substance: LEVOTHYROXINE
     Dosage: 150 MCG TABLET
     Dates: start: 20230817
  10. WEGOVY [Concomitant]
     Active Substance: SEMAGLUTIDE
     Indication: Product used for unknown indication
     Dosage: UNK
     Dates: start: 20230216
  11. SUNOSI [Concomitant]
     Active Substance: SOLRIAMFETOL
     Indication: Product used for unknown indication
     Dosage: UNK
     Dates: start: 20180817

REACTIONS (4)
  - Thyroidectomy [Unknown]
  - Throat irritation [Unknown]
  - Weight decreased [Unknown]
  - Product administration interrupted [Unknown]

NARRATIVE: CASE EVENT DATE: 20221231
